FAERS Safety Report 10286291 (Version 2)
Quarter: 2014Q3

REPORT INFORMATION
  Report Type: Spontaneous
  Country: FR (occurrence: None)
  Receive Date: 20140707
  Receipt Date: 20140716
  Transmission Date: 20150326
  Serious: Yes (Other)
  Sender: FDA-Public Use
  Company Number: AXC-2013-000369

PATIENT
  Sex: Female

DRUGS (3)
  1. PYLERA [Suspect]
     Active Substance: BISMUTH SUBCITRATE POTASSIUM\METRONIDAZOLE\TETRACYCLINE HYDROCHLORIDE
     Dosage: 3 DF,
     Route: 048
     Dates: start: 20130716, end: 20130726
  2. KARDEGIC [Suspect]
     Active Substance: ASPIRIN LYSINE
     Indication: MITRAL VALVE INCOMPETENCE
     Route: 048
  3. PYLERA [Suspect]
     Active Substance: BISMUTH SUBCITRATE POTASSIUM\METRONIDAZOLE\TETRACYCLINE HYDROCHLORIDE
     Indication: HELICOBACTER GASTRITIS
     Dosage: 3 DF,
     Route: 048
     Dates: start: 20130716, end: 20130726

REACTIONS (2)
  - Exposure during pregnancy [None]
  - Abortion spontaneous [None]

NARRATIVE: CASE EVENT DATE: 20130716
